FAERS Safety Report 8000682-1 (Version None)
Quarter: 2011Q4

REPORT INFORMATION
  Report Type: 
  Country: None (occurrence: None)
  Receive Date: 20111222
  Receipt Date: 20111214
  Transmission Date: 20120403
  Serious: Yes (Other)
  Sender: FDA-Public Use
  Company Number: US-BAYER-2011-041405

PATIENT
  Age: 26 Year
  Sex: Female
  Weight: 90.703 kg

DRUGS (4)
  1. YAZ [Suspect]
     Dosage: UNK
     Dates: start: 20101201
  2. YAZ [Suspect]
     Indication: PRODUCT USED FOR UNKNOWN INDICATION
     Dosage: UNK
     Dates: start: 20100101, end: 20110101
  3. YASMIN [Suspect]
     Indication: CONTRACEPTION
     Dosage: UNK
     Dates: start: 20040101, end: 20050101
  4. YASMIN [Suspect]
     Dosage: UNK
     Dates: start: 20101201

REACTIONS (7)
  - CHOLELITHIASIS [None]
  - PAIN [None]
  - VOMITING [None]
  - AMENORRHOEA [None]
  - INJURY [None]
  - GALLBLADDER DISORDER [None]
  - MALAISE [None]
